FAERS Safety Report 10779255 (Version 2)
Quarter: 2015Q1

REPORT INFORMATION
  Report Type: Spontaneous
  Country: US (occurrence: US)
  Receive Date: 20150210
  Receipt Date: 20150210
  Transmission Date: 20150721
  Serious: No
  Sender: FDA-Public Use
  Company Number: US-GLAXOSMITHKLINE-A1074934A

PATIENT

DRUGS (10)
  1. MULTIVITAMIN [Concomitant]
     Active Substance: VITAMINS
  2. BACTROBAN [Concomitant]
     Active Substance: MUPIROCIN\MUPIROCIN CALCIUM
     Indication: SKIN NECROSIS
  3. ASACOL [Concomitant]
     Active Substance: MESALAMINE
  4. BABY ASPIRIN [Concomitant]
     Active Substance: ASPIRIN
  5. MUPIROCIN CALCIUM CREAM CREAM [Suspect]
     Active Substance: MUPIROCIN CALCIUM
     Indication: SKIN NECROSIS
     Dosage: 2 PERCENT CREAM
     Route: 061
     Dates: start: 20140429, end: 20140430
  6. BETASERON [Suspect]
     Active Substance: INTERFERON BETA-1B
     Indication: MULTIPLE SCLEROSIS
     Route: 065
  7. OMEPRAZOLE. [Concomitant]
     Active Substance: OMEPRAZOLE
  8. VITAMIN D [Concomitant]
     Active Substance: CHOLECALCIFEROL
  9. MUPIROCIN CALCIUM CREAM CREAM [Suspect]
     Active Substance: MUPIROCIN CALCIUM
     Dates: start: 20140429, end: 20140430
  10. DOXYCYCLINE. [Concomitant]
     Active Substance: DOXYCYCLINE

REACTIONS (3)
  - Skin induration [Not Recovered/Not Resolved]
  - Skin discolouration [Not Recovered/Not Resolved]
  - Thermal burn [Not Recovered/Not Resolved]
